FAERS Safety Report 18944125 (Version 1)
Quarter: 2021Q1

REPORT INFORMATION
  Report Type: Other
  Country: BG (occurrence: BG)
  Receive Date: 20210226
  Receipt Date: 20210226
  Transmission Date: 20210420
  Serious: Yes (Hospitalization, Other)
  Sender: FDA-Public Use
  Company Number: BG-INNOGENIX, LLC-2107356

PATIENT
  Age: 37 Year
  Sex: Male

DRUGS (4)
  1. MODITEN DEPOT [FLUPHENAZINE HYDROCHLORIDE] [Suspect]
     Active Substance: FLUPHENAZINE HYDROCHLORIDE
     Route: 065
  2. CHLORPROTIXEN [Suspect]
     Active Substance: CHLORPROTHIXENE HYDROCHLORIDE
     Route: 065
  3. VALPROIC ACID. [Suspect]
     Active Substance: VALPROIC ACID
     Route: 065
  4. HALOPERIDOL. [Suspect]
     Active Substance: HALOPERIDOL
     Indication: SCHIZOPHRENIA
     Route: 065

REACTIONS (4)
  - Ischaemic stroke [Unknown]
  - Arterial thrombosis [Unknown]
  - Subclavian steal syndrome [Unknown]
  - Neuroleptic malignant syndrome [Unknown]
